FAERS Safety Report 13865055 (Version 2)
Quarter: 2017Q3

REPORT INFORMATION
  Report Type: Spontaneous
  Country: US (occurrence: US)
  Receive Date: 20170814
  Receipt Date: 20170907
  Transmission Date: 20171127
  Serious: No
  Sender: FDA-Public Use
  Company Number: US-009507513-1708USA004720

PATIENT
  Age: 22 Year
  Sex: Female
  Weight: 112.2 kg

DRUGS (1)
  1. NEXPLANON [Suspect]
     Active Substance: ETONOGESTREL
     Indication: CONTRACEPTION
     Dosage: ONE ROD EVERY THREE YEARS, RIGHT ARM
     Route: 059
     Dates: start: 20170628, end: 20170806

REACTIONS (4)
  - Device expulsion [Recovered/Resolved]
  - Maternal exposure during pregnancy [Unknown]
  - Device deployment issue [Recovered/Resolved]
  - Implant site infection [Unknown]

NARRATIVE: CASE EVENT DATE: 2017
